FAERS Safety Report 9454091 (Version 1)
Quarter: 2013Q3

REPORT INFORMATION
  Report Type: Spontaneous
  Country: US (occurrence: US)
  Receive Date: 20130812
  Receipt Date: 20130812
  Transmission Date: 20140515
  Serious: Yes (Death, Other)
  Sender: FDA-Public Use
  Company Number: US-CUBIST PHARMACEUTICAL, INC.-2013CBST000223

PATIENT
  Age: 61 Year
  Sex: Female

DRUGS (12)
  1. CUBICIN [Suspect]
     Indication: SEPTIC SHOCK
     Dosage: UNK UNK UNK
  2. CUBICIN [Suspect]
     Indication: RESPIRATORY FAILURE
  3. CUBICIN [Suspect]
     Indication: OFF LABEL USE
  4. LEVOFLOXACIN [Concomitant]
     Indication: GASTROENTERITIS
     Dosage: UNK UNK, UNK
  5. MEROPENEM [Concomitant]
     Indication: SEPTIC SHOCK
     Dosage: UNK UNK, UNK
  6. MEROPENEM [Concomitant]
     Indication: RESPIRATORY FAILURE
  7. LINEZOLID [Concomitant]
     Indication: SEPTIC SHOCK
     Dosage: UNK UNK, UNK
  8. LINEZOLID [Concomitant]
     Indication: RESPIRATORY FAILURE
  9. OTHER THERAPEUTIC PRODUCTS (VASOPRESSORS) [Concomitant]
     Indication: SEPTIC SHOCK
     Dosage: UNK UNK, UNK
  10. OTHER THERAPEUTIC PRODUCTS (VASOPRESSORS) [Concomitant]
     Indication: RESPIRATORY FAILURE
  11. OTHER THERAPEUTIC PRODUCTS (FLUID) [Concomitant]
     Indication: SEPTIC SHOCK
     Dosage: UNK UNK, UNK
  12. OTHER THERAPEUTIC PRODUCTS (FLUID) [Concomitant]
     Indication: RESPIRATORY FAILURE

REACTIONS (6)
  - Acute respiratory failure [Fatal]
  - Renal failure acute [Recovered/Resolved]
  - Leukocytosis [Recovered/Resolved]
  - Liver disorder [Recovered/Resolved]
  - Blister [Unknown]
  - Erythema [Unknown]
